FAERS Safety Report 9168825 (Version 6)
Quarter: 2013Q3

REPORT INFORMATION
  Report Type: Spontaneous
  Country: FR (occurrence: None)
  Receive Date: 20130307
  Receipt Date: 20130925
  Transmission Date: 20140515
  Serious: Yes (Hospitalization)
  Sender: FDA-Public Use
  Company Number: SYM-2013-01364

PATIENT
  Age: 53 Year
  Sex: Female

DRUGS (24)
  1. 5-FU [Suspect]
     Indication: COLORECTAL CANCER METASTATIC
     Dosage: EVERY OTHER WEEK, (NOT OTHERWISE SPECIFIED)
     Route: 040
     Dates: start: 20130114, end: 20130114
  2. AFLIBERCEPT [Suspect]
     Indication: COLORECTAL CANCER METASTATIC
     Dosage: EVERY OTHER WEEK, (NOT OTHERWISE SPECIFIED)?
     Route: 042
     Dates: start: 20130114, end: 20130114
  3. IRINOTECAN [Suspect]
     Indication: COLORECTAL CANCER METASTATIC
     Dosage: EVERY OTHER WEEK, (NOT OTHERWISE SPECIFIED)?
     Route: 042
     Dates: start: 20130114, end: 20130114
  4. LEUCOVORIN [Suspect]
     Indication: COLORECTAL CANCER METASTATIC
     Dosage: EVERY OTHER WEEK, (NOT OTHERWISE SPECIFIED)
     Route: 042
     Dates: start: 20130114, end: 20130114
  5. EMEND (APREPITANT)(APREPITANT) [Concomitant]
  6. ZOPHREN (ONDANSETRON HYDROCHLORIDE)(ONDANSETRON HYDROCHLORIDE) [Concomitant]
  7. OMEPRAZOLE (OMEPRAZOLE)(OMEPRAZOLE) [Concomitant]
  8. SEVREDOL (MORPHINE SULFATE)(MORPHINE SULFATE) [Concomitant]
  9. MOVICOL [Concomitant]
  10. DUROGESIC (FENTANYL)(FENTANYL) [Concomitant]
  11. IXPRIM (ULTRACET)(PARACETAMOL, TRAMADOL HYDROCHLORIDE) [Concomitant]
  12. CONTRAMAL (TRAMADOL HYDROCHLORIDE)(TRAMADOL HYDROCHLORIDE) [Concomitant]
  13. DAFALGAN (PARACETAMOL)(PARACETAMOL) [Concomitant]
  14. INEXIUM (ESOMEPRAZOLE)(ESOMEPRAZOLE) [Concomitant]
  15. LOVENOX (ENOXAPARIN SODIUM)(ENOXAPARIN SODIUM) [Concomitant]
  16. CALCIUM CHANNEL BLOCKERS (CALCIUM CHANNEL BLOCKERS) [Concomitant]
  17. DOLIPRANE (PARACETAMOL)(PARACETAMOL [Concomitant]
  18. DOMPERIDONE (DOMPERIDONE) (DOMPERIDONE) [Concomitant]
  19. LYRICA (PREGABALIN)(PREGABALIN) [Concomitant]
  20. FENTANYL (FENTANYL)(FENTANYL) [Concomitant]
  21. LIDOCAINE (LIDOCAINE)(LIDOCAINE) [Concomitant]
  22. ANTIHISTAMINES (ANTIHISTAMINES) [Concomitant]
  23. TRIFLUCAN (FLUCONAZOLE)(FLUCONAZOLE) [Concomitant]
  24. LOMEXIN (FENTICONAZOLE NITRATE)(FENTICONAZOLE NITRATE) [Concomitant]

REACTIONS (11)
  - General physical health deterioration [None]
  - Vomiting [None]
  - Nausea [None]
  - Decreased appetite [None]
  - Intestinal obstruction [None]
  - Ascites [None]
  - Hepatic lesion [None]
  - Hypertension [None]
  - Malnutrition [None]
  - Haemoglobin decreased [None]
  - Haematocrit decreased [None]
